FAERS Safety Report 17527192 (Version 1)
Quarter: 2020Q1

REPORT INFORMATION
  Report Type: Spontaneous
  Country: RO (occurrence: RO)
  Receive Date: 20200310
  Receipt Date: 20200310
  Transmission Date: 20200409
  Serious: Yes (Other)
  Sender: FDA-Public Use
  Company Number: RO-SA-2020SA059126

PATIENT
  Age: 63 Year
  Sex: Female

DRUGS (1)
  1. SULIQUA [Suspect]
     Active Substance: INSULIN GLARGINE\LIXISENATIDE
     Dosage: 30 IU
     Route: 065

REACTIONS (3)
  - Metastases to lung [Unknown]
  - Metastases to liver [Unknown]
  - Pancreatic neoplasm [Unknown]
